FAERS Safety Report 5106255-2 (Version None)
Quarter: 2006Q3

REPORT INFORMATION
  Report Type: 
  Country: None (occurrence: None)
  Receive Date: 20060912
  Receipt Date: 20060828
  Transmission Date: 20061208
  Serious: Yes (Other)
  Sender: FDA-Public Use
  Company Number: S06-FRA-00440-01

PATIENT
  Age: 93 Year
  Sex: Female
  Weight: 51 kg

DRUGS (7)
  1. ESCITALOPRAM [Suspect]
     Indication: DRUG USE FOR UNKNOWN INDICATION
     Dosage: 20 MG QD PO
     Route: 048
  2. INSULATARD NPH HUMAN [Concomitant]
  3. GLCOPHAGE (METFORMIN) [Concomitant]
  4. ZOLPIDEM TARTRATE [Concomitant]
  5. NOCTRAN 10 [Concomitant]
  6. FERROUS SULFATE TAB [Concomitant]
  7. ELEVIT VITAMINE B9 [Concomitant]

REACTIONS (12)
  - ALPHA GLOBULIN INCREASED [None]
  - HAEMATOCRIT DECREASED [None]
  - HAEMOGLOBIN DECREASED [None]
  - HYPERGAMMAGLOBULINAEMIA [None]
  - HYPOALBUMINAEMIA [None]
  - LABORATORY TEST ABNORMAL [None]
  - MEAN CELL VOLUME INCREASED [None]
  - MYELOCYTE PERCENTAGE INCREASED [None]
  - PROTEIN TOTAL INCREASED [None]
  - RED BLOOD CELL COUNT DECREASED [None]
  - THROMBOCYTOPENIA [None]
  - WHITE BLOOD CELL COUNT DECREASED [None]
